FAERS Safety Report 8266040-X (Version None)
Quarter: 2012Q2

REPORT INFORMATION
  Report Type: 
  Country: None (occurrence: None)
  Receive Date: 20120406
  Receipt Date: 20110711
  Transmission Date: 20120825
  Serious: Yes (Other)
  Sender: FDA-Public Use
  Company Number: CN-ASTRAZENECA-2011SE40959

PATIENT
  Sex: Female

DRUGS (2)
  1. SODIUM CHLORIDE [Concomitant]
  2. LIDOCAINE [Suspect]
     Route: 042

REACTIONS (1)
  - ABORTION INDUCED [None]
